FAERS Safety Report 15631640 (Version 1)
Quarter: 2018Q4

REPORT INFORMATION
  Report Type: Spontaneous
  Country: US (occurrence: US)
  Receive Date: 20181118
  Receipt Date: 20181118
  Transmission Date: 20190205
  Serious: Yes (Disabling)
  Sender: FDA-Public Use
  Company Number: None

PATIENT
  Age: 65 Year
  Sex: Male
  Weight: 63.9 kg

DRUGS (3)
  1. LORSARTAN [Concomitant]
     Active Substance: LOSARTAN
  2. ROSUVASTATIN BUT IT DOES NOT MATTER WHICH ONE. ITS ALL CHOLESTEROL MED [Suspect]
     Active Substance: ROSUVASTATIN
     Indication: BLOOD CHOLESTEROL INCREASED
     Dosage: ?          QUANTITY:1 TABLET(S);?
     Route: 048
  3. LATANOPROST. [Concomitant]
     Active Substance: LATANOPROST

REACTIONS (4)
  - Pain in extremity [None]
  - Pain [None]
  - Muscle disorder [None]
  - Sensation of blood flow [None]
